FAERS Safety Report 4827544-2 (Version None)
Quarter: 2005Q4

REPORT INFORMATION
  Report Type: 
  Country: None (occurrence: None)
  Receive Date: 20051114
  Receipt Date: 20050905
  Transmission Date: 20060501
  Serious: Yes (Disabling)
  Sender: FDA-Public Use
  Company Number: FR-BRISTOL-MYERS SQUIBB COMPANY-13102835

PATIENT
  Age: 42 Year
  Sex: Male
  Weight: 85 kg

DRUGS (1)
  1. ELISOR TABS 20 MG [Suspect]
     Route: 048
     Dates: start: 20040601, end: 20050630

REACTIONS (8)
  - AMYOTROPHY [None]
  - BLOOD CREATINE PHOSPHOKINASE INCREASED [None]
  - ERECTILE DYSFUNCTION [None]
  - MUSCULAR WEAKNESS [None]
  - MYALGIA [None]
  - POLYURIA [None]
  - RHABDOMYOLYSIS [None]
  - WEIGHT DECREASED [None]
